FAERS Safety Report 10215389 (Version 1)
Quarter: 2014Q2

REPORT INFORMATION
  Report Type: Spontaneous
  Country: US (occurrence: US)
  Receive Date: 20140604
  Receipt Date: 20140604
  Transmission Date: 20141212
  Serious: Yes (Other)
  Sender: FDA-Public Use
  Company Number: US-JNJCP-30000221922

PATIENT
  Sex: Male
  Weight: 108 kg

DRUGS (1)
  1. NEUTROGENA ULTRA SHEER SUNBLOCK SPF100 [Suspect]
     Indication: PROPHYLAXIS
     Dosage: ONCE A DAY
     Route: 061
     Dates: end: 20140519

REACTIONS (1)
  - Depression [Recovered/Resolved]
